FAERS Safety Report 24346578 (Version 1)
Quarter: 2024Q3

REPORT INFORMATION
  Report Type: Spontaneous
  Country: GB (occurrence: GB)
  Receive Date: 20240921
  Receipt Date: 20240921
  Transmission Date: 20241017
  Serious: Yes (Other)
  Sender: AUROBINDO
  Company Number: GB-MHRA-EMIS-10165-f30e51ec-12e7-47f0-9ecd-42be21b1265c

PATIENT
  Age: 70 Year
  Sex: Female
  Weight: 74 kg

DRUGS (4)
  1. LISINOPRIL [Suspect]
     Active Substance: LISINOPRIL
     Indication: Product used for unknown indication
     Dosage: 1 DOSAGE FORM, DAILY
     Route: 065
     Dates: start: 20240826, end: 20240905
  2. LISINOPRIL [Concomitant]
     Active Substance: LISINOPRIL
     Indication: Product used for unknown indication
     Dosage: 1 DOSAGE FORM, DAILY
     Route: 065
     Dates: start: 20240717, end: 20240816
  3. LISINOPRIL [Concomitant]
     Active Substance: LISINOPRIL
     Dosage: 1 DOSAGE FORM, DAILY
     Route: 065
     Dates: start: 20240816
  4. INDAPAMIDE [Concomitant]
     Active Substance: INDAPAMIDE
     Indication: Product used for unknown indication
     Dosage: 1 DOSAGE FORM, EVERY MORNING (ONE TO BE TAKEN EACH MORNING FOR BLOOD PRESSURE)
     Route: 065
     Dates: start: 20240905

REACTIONS (1)
  - Swollen tongue [Recovered/Resolved]
